FAERS Safety Report 5369275-9 (Version None)
Quarter: 2007Q2

REPORT INFORMATION
  Report Type: 
  Country: None (occurrence: None)
  Receive Date: 20070625
  Receipt Date: 20070301
  Transmission Date: 20071010
  Serious: No
  Sender: FDA-Public Use
  Company Number: US-ASTRAZENECA-2007UW03988

PATIENT
  Age: 73 Year
  Sex: Female

DRUGS (4)
  1. CRESTOR [Suspect]
     Route: 048
  2. AVANDIA [Concomitant]
  3. HYZAAR [Concomitant]
  4. ASPIRIN [Concomitant]

REACTIONS (1)
  - ALOPECIA [None]
